FAERS Safety Report 9485055 (Version 1)
Quarter: 2013Q3

REPORT INFORMATION
  Report Type: Spontaneous
  Country: US (occurrence: US)
  Receive Date: 20130828
  Receipt Date: 20130828
  Transmission Date: 20140515
  Serious: No
  Sender: FDA-Public Use
  Company Number: US-ABBOTT-13P-163-1099662-00

PATIENT
  Age: 41 Year
  Sex: Male
  Weight: 118.04 kg

DRUGS (6)
  1. ANDROGEL [Suspect]
     Indication: BLOOD TESTOSTERONE DECREASED
     Dates: start: 201303
  2. ALLOPURINOL [Concomitant]
     Indication: GOUT
  3. AVAPRO [Concomitant]
     Indication: HYPERTENSION
  4. PROPECIA [Concomitant]
     Indication: PROPHYLAXIS
  5. PROPECIA [Concomitant]
     Indication: ALOPECIA
  6. SIMCOR [Concomitant]
     Indication: BLOOD CHOLESTEROL INCREASED

REACTIONS (1)
  - Blood testosterone decreased [Not Recovered/Not Resolved]
